FAERS Safety Report 9097757 (Version 1)
Quarter: 2013Q1

REPORT INFORMATION
  Report Type: Spontaneous
  Country: US (occurrence: US)
  Receive Date: 20130212
  Receipt Date: 20130212
  Transmission Date: 20140127
  Serious: No
  Sender: FDA-Public Use
  Company Number: US-B.I. PHARMACEUTICALS,INC./RIDGEFIELD-2013-BI-03821BP

PATIENT
  Sex: Female
  Weight: 88 kg

DRUGS (15)
  1. SPIRIVA [Suspect]
     Dosage: 18 MCG
     Route: 055
  2. OXYCONTIN [Concomitant]
     Indication: PAIN
     Dosage: 240 MG
     Route: 048
  3. POTASSIUM [Concomitant]
     Dosage: 20 MEQ
     Route: 048
  4. PRILOSEC [Concomitant]
     Indication: GASTROOESOPHAGEAL REFLUX DISEASE
     Dosage: 40 MG
     Route: 048
  5. NEURONTIN [Concomitant]
     Dosage: 1800 MG
     Route: 048
  6. AVAPRO [Concomitant]
     Indication: HYPERTENSION
     Dosage: 75 MG
     Route: 048
  7. HYDROCHLOROTHIAZIDE [Concomitant]
     Dosage: 50 MG
     Route: 048
  8. MENEST [Concomitant]
     Dosage: 0.625 MG
     Route: 048
  9. TRAZADONE [Concomitant]
     Dosage: 400 MG
     Route: 048
  10. TOPIRAMATE [Concomitant]
     Dosage: 200 MG
     Route: 048
  11. GEODON [Concomitant]
     Dosage: 160 MG
     Route: 048
  12. SINGULAIR [Concomitant]
     Dosage: 10 MG
     Route: 048
  13. ADVAIR [Concomitant]
     Route: 055
  14. WELLBUTRIN [Concomitant]
     Indication: DEPRESSION
     Dosage: 300 MG
     Route: 048
  15. TOVIAZ [Concomitant]
     Indication: BLADDER DISORDER
     Dosage: 4 MG
     Route: 048

REACTIONS (1)
  - Drug ineffective [Recovered/Resolved]
